FAERS Safety Report 7068698-X (Version None)
Quarter: 2010Q4

REPORT INFORMATION
  Report Type: 
  Country: None (occurrence: None)
  Receive Date: 20101027
  Receipt Date: 20101027
  Transmission Date: 20110411
  Serious: Yes (Other)
  Sender: FDA-Public Use
  Company Number: None

PATIENT
  Age: 13 Month
  Sex: Female
  Weight: 8.6183 kg

DRUGS (1)
  1. TEETHING TABLETS N/A HYLAND'S HOMEOPATHIC [Suspect]
     Indication: TOOTHACHE
     Dosage: 3 TABLETS 1-2 X DAY ON + OFF PO
     Route: 048
     Dates: start: 20101008, end: 20101025

REACTIONS (5)
  - AGITATION [None]
  - BALANCE DISORDER [None]
  - DYSURIA [None]
  - GAIT DISTURBANCE [None]
  - SOMNOLENCE [None]
